FAERS Safety Report 9926975 (Version 2)
Quarter: 2016Q1

REPORT INFORMATION
  Report Type: Report from Study
  Country: US (occurrence: US)
  Receive Date: 20140226
  Receipt Date: 20160210
  Transmission Date: 20160526
  Serious: Yes (Other)
  Sender: FDA-Public Use
  Company Number: US-AMGEN-USASP2013090620

PATIENT
  Age: 76 Year
  Sex: Female

DRUGS (2)
  1. ENBREL [Suspect]
     Active Substance: ETANERCEPT
     Dosage: UNK UNK, UNK
     Route: 065
  2. ENBREL [Suspect]
     Active Substance: ETANERCEPT
     Indication: RHEUMATOID ARTHRITIS
     Dosage: 50 MG, WEEKLY
     Route: 065
     Dates: start: 2012

REACTIONS (11)
  - Infection [Unknown]
  - Arthralgia [Unknown]
  - Injection site pain [Unknown]
  - Knee arthroplasty [Unknown]
  - Weight decreased [Unknown]
  - Therapeutic response delayed [Recovered/Resolved]
  - Condition aggravated [Unknown]
  - Pain in extremity [Unknown]
  - Injection site extravasation [Unknown]
  - Gait disturbance [Unknown]
  - Needle issue [Unknown]

NARRATIVE: CASE EVENT DATE: 20131007
